FAERS Safety Report 6212600-7 (Version None)
Quarter: 2009Q2

REPORT INFORMATION
  Report Type: 
  Country: None (occurrence: None)
  Receive Date: 20090529
  Receipt Date: 20090518
  Transmission Date: 20091009
  Serious: Yes (Disabling)
  Sender: FDA-Public Use
  Company Number: 1000006409

PATIENT
  Age: 64 Year
  Sex: Female

DRUGS (2)
  1. CITALOPRAM HYDROBROMIDE [Suspect]
     Dates: start: 20081002
  2. AMITRIPTLINE HYDROCHLORIDE TAB [Suspect]
     Dosage: 50 MG (50 MG, 1 IN 1 D), ORAL
     Route: 048
     Dates: start: 20070101, end: 20081012

REACTIONS (4)
  - DRUG INTERACTION [None]
  - FEELING ABNORMAL [None]
  - HYPERSOMNIA [None]
  - TREMOR [None]
